FAERS Safety Report 9444493 (Version 1)
Quarter: 2013Q3

REPORT INFORMATION
  Report Type: Report from Study
  Country: CO (occurrence: CO)
  Receive Date: 20130807
  Receipt Date: 20130807
  Transmission Date: 20140515
  Serious: Yes (Life-Threatening)
  Sender: FDA-Public Use
  Company Number: CO-SANOFI-AVENTIS-2013SA076837

PATIENT
  Age: 63 Year
  Sex: Male

DRUGS (5)
  1. LANTUS [Suspect]
     Indication: DIABETES MELLITUS
     Dosage: DOSE:12 UNIT(S)
     Route: 058
     Dates: start: 201304
  2. LOSARTAN [Suspect]
     Indication: HYPERTENSION
     Route: 048
  3. FUROSEMIDE [Suspect]
     Indication: PRODUCT USED FOR UNKNOWN INDICATION
     Route: 048
  4. METFORMIN [Concomitant]
     Indication: DIABETES MELLITUS
     Route: 048
  5. METOPROLOL [Concomitant]
     Route: 048

REACTIONS (3)
  - Hypertensive crisis [Recovering/Resolving]
  - Oedema [Unknown]
  - Blood glucose increased [Unknown]
